FAERS Safety Report 5298112-6 (Version None)
Quarter: 2007Q1

REPORT INFORMATION
  Report Type: 
  Country: None (occurrence: None)
  Receive Date: 20070205
  Receipt Date: 20061005
  Transmission Date: 20070707
  Serious: Yes (Hospitalization, Other)
  Sender: FDA-Public Use
  Company Number: US200609004820

PATIENT
  Age: 72 Year
  Sex: Female
  Weight: 104.3 kg

DRUGS (2)
  1. EVISTA [Suspect]
     Indication: OSTEOPOROSIS
     Dosage: 60 MG, DAILY (1/D), ORAL
     Route: 048
     Dates: end: 20060918
  2. LOTREL [Concomitant]

REACTIONS (1)
  - PULMONARY EMBOLISM [None]
